FAERS Safety Report 6844770-1 (Version None)
Quarter: 2010Q3

REPORT INFORMATION
  Report Type: 
  Country: None (occurrence: None)
  Receive Date: 20100715
  Receipt Date: 20100707
  Transmission Date: 20110219
  Serious: Yes (Death)
  Sender: FDA-Public Use
  Company Number: GXKR2010BE07522

PATIENT
  Sex: Male

DRUGS (2)
  1. METHYLPREDNISOLONE 4MG TAB [Suspect]
     Indication: ANAEMIA HAEMOLYTIC AUTOIMMUNE
     Dosage: 64 MG/DAY
  2. METHYLPREDNISOLONE 4MG TAB [Suspect]
     Dosage: 16 MG, UNK
     Route: 065

REACTIONS (11)
  - ASPERGILLOSIS [None]
  - FATIGUE [None]
  - HEPATIC FAILURE [None]
  - HYPOXIA [None]
  - MECHANICAL VENTILATION [None]
  - OXYGEN SATURATION DECREASED [None]
  - PRODUCTIVE COUGH [None]
  - RENAL FAILURE [None]
  - RESPIRATORY ACIDOSIS [None]
  - RESPIRATORY FAILURE [None]
  - RHONCHI [None]
